FAERS Safety Report 19583919 (Version 2)
Quarter: 2021Q3

REPORT INFORMATION
  Report Type: Spontaneous
  Country: US (occurrence: US)
  Receive Date: 20210720
  Receipt Date: 20210726
  Transmission Date: 20211014
  Serious: Yes (Hospitalization, Other)
  Sender: FDA-Public Use
  Company Number: US-ORGANON-O2107USA001456

PATIENT
  Age: 74 Year
  Sex: Female

DRUGS (1)
  1. ASMANEX HFA [Suspect]
     Active Substance: MOMETASONE FUROATE
     Indication: ASTHMA
     Dosage: 220 MICROGRAM (ASMANEX HFA MDI 200 MCG 120 DOSE)
     Dates: start: 202012

REACTIONS (4)
  - COVID-19 [Recovered/Resolved]
  - Poor quality device used [Unknown]
  - Device malfunction [Unknown]
  - Rectal haemorrhage [Recovered/Resolved]

NARRATIVE: CASE EVENT DATE: 202012
